FAERS Safety Report 16010615 (Version 3)
Quarter: 2021Q2

REPORT INFORMATION
  Report Type: Spontaneous
  Country: US (occurrence: US)
  Receive Date: 20190225
  Receipt Date: 20210520
  Transmission Date: 20210716
  Serious: Yes (Other)
  Sender: FDA-Public Use
  Company Number: PHEH2019US008110

PATIENT
  Sex: Male

DRUGS (1)
  1. TASIGNA [Suspect]
     Active Substance: NILOTINIB
     Indication: CHRONIC MYELOID LEUKAEMIA
     Dosage: 2 DF, BID
     Route: 048
     Dates: start: 20120723, end: 2018

REACTIONS (13)
  - Lipoma [Unknown]
  - Injury [Unknown]
  - Cervical spinal stenosis [Unknown]
  - Peripheral artery occlusion [Unknown]
  - Seasonal allergy [Unknown]
  - Hypertriglyceridaemia [Unknown]
  - Anxiety [Unknown]
  - Keloid scar [Unknown]
  - Pain [Unknown]
  - Nephrolithiasis [Unknown]
  - Hyperglycaemia [Unknown]
  - Emotional distress [Unknown]
  - Arteriosclerosis [Unknown]
